FAERS Safety Report 11350793 (Version 1)
Quarter: 2015Q3

REPORT INFORMATION
  Report Type: Spontaneous
  Country: US (occurrence: US)
  Receive Date: 20150807
  Receipt Date: 20150807
  Transmission Date: 20151125
  Serious: No
  Sender: FDA-Public Use
  Company Number: US-JNJFOC-20150103857

PATIENT
  Age: 77 Year
  Sex: Female
  Weight: 63.5 kg

DRUGS (1)
  1. WOMENS ROGAINE EXTRA STRENGTH [Suspect]
     Active Substance: MINOXIDIL
     Indication: HAIR GROWTH ABNORMAL
     Dosage: MORE THAN HALF A CAP
     Route: 061

REACTIONS (1)
  - Incorrect dose administered [Unknown]
